FAERS Safety Report 17659129 (Version 1)
Quarter: 2020Q2

REPORT INFORMATION
  Report Type: Spontaneous
  Country: US (occurrence: US)
  Receive Date: 20200413
  Receipt Date: 20200413
  Transmission Date: 20200713
  Serious: No
  Sender: FDA-Public Use
  Company Number: US-009507513-2004USA001042

PATIENT
  Sex: Female

DRUGS (2)
  1. KEYTRUDA [Suspect]
     Active Substance: PEMBROLIZUMAB
     Dosage: UNK
     Dates: end: 20200311
  2. LENVATINIB MESYLATE [Suspect]
     Active Substance: LENVATINIB MESYLATE
     Indication: ENDOMETRIAL CANCER
     Dosage: 14 MILLIGRAM, QD
     Route: 048
     Dates: start: 20200129

REACTIONS (9)
  - Fatigue [Not Recovered/Not Resolved]
  - Diarrhoea [Not Recovered/Not Resolved]
  - Weight decreased [Recovered/Resolved]
  - Coronavirus infection [Unknown]
  - Decreased appetite [Not Recovered/Not Resolved]
  - Feeling abnormal [Not Recovered/Not Resolved]
  - Product dose omission [Unknown]
  - Dyspepsia [Recovered/Resolved]
  - Osteoarthritis [Not Recovered/Not Resolved]

NARRATIVE: CASE EVENT DATE: 2020
